FAERS Safety Report 20924291 (Version 1)
Quarter: 2022Q2

REPORT INFORMATION
  Report Type: Spontaneous
  Country: US (occurrence: None)
  Receive Date: 20220606
  Receipt Date: 20220606
  Transmission Date: 20220721
  Serious: Yes (Other)
  Sender: FDA-Public Use
  Company Number: None

PATIENT
  Age: 59 Year
  Sex: Female
  Weight: 77.85 kg

DRUGS (15)
  1. AMLODIPINE [Suspect]
     Active Substance: AMLODIPINE BESYLATE
     Indication: Hypertension
     Dosage: FREQUENCY : AT BEDTIME;?
     Route: 048
     Dates: end: 20220530
  2. IC FERROUS SULF EC [Concomitant]
  3. MAGNESIUM [Concomitant]
     Active Substance: MAGNESIUM
  4. POTASSIUM [Concomitant]
     Active Substance: POTASSIUM
  5. Glucosamine Chonddroitin MSM Complex [Concomitant]
  6. TAURINE [Concomitant]
     Active Substance: TAURINE
  7. FISH OIL\OMEGA-3 FATTY ACIDS [Concomitant]
     Active Substance: FISH OIL\OMEGA-3 FATTY ACIDS
  8. VITAMIN D3 [Concomitant]
     Active Substance: CHOLECALCIFEROL
  9. CURCUMIN [Concomitant]
     Active Substance: CURCUMIN
  10. VITAMIN E [Concomitant]
     Active Substance: .ALPHA.-TOCOPHEROL
  11. DIETARY SUPPLEMENT\HERBALS\INDIAN FRANKINCENSE [Concomitant]
     Active Substance: DIETARY SUPPLEMENT\HERBALS\INDIAN FRANKINCENSE
  12. DIETARY SUPPLEMENT\GRAPE SEED EXTRACT [Concomitant]
     Active Substance: DIETARY SUPPLEMENT\GRAPE SEED EXTRACT
  13. CRANBERRY [Concomitant]
     Active Substance: CRANBERRY
  14. VITAMIN K [Concomitant]
     Active Substance: PHYTONADIONE
  15. Liver Blend Sp-13 (Dandelion, Milk Thistle, Burdock, Artichoke, Pepper [Concomitant]

REACTIONS (49)
  - Generalised oedema [None]
  - Flushing [None]
  - Arthralgia [None]
  - Muscle spasms [None]
  - Tongue discomfort [None]
  - Burning sensation [None]
  - Nasal pruritus [None]
  - Headache [None]
  - Abdominal pain upper [None]
  - Discomfort [None]
  - Loss of consciousness [None]
  - Pain [None]
  - Pruritus [None]
  - Muscle atrophy [None]
  - Joint swelling [None]
  - Peripheral swelling [None]
  - Gingival bleeding [None]
  - Paraesthesia [None]
  - Hypoaesthesia [None]
  - Hypoaesthesia [None]
  - Cough [None]
  - Throat irritation [None]
  - Dry throat [None]
  - Dry mouth [None]
  - Constipation [None]
  - Myalgia [None]
  - Pruritus [None]
  - Pain in extremity [None]
  - Pain in extremity [None]
  - Back pain [None]
  - Tendon pain [None]
  - Pain in extremity [None]
  - Bladder spasm [None]
  - Nocturia [None]
  - Thirst [None]
  - Insomnia [None]
  - Gastrooesophageal reflux disease [None]
  - Eructation [None]
  - Dyspepsia [None]
  - Musculoskeletal stiffness [None]
  - Muscle tightness [None]
  - Feeling cold [None]
  - Food craving [None]
  - Diarrhoea [None]
  - Tongue blistering [None]
  - Tremor [None]
  - Muscular weakness [None]
  - Joint swelling [None]
  - Skin swelling [None]

NARRATIVE: CASE EVENT DATE: 20220513
